FAERS Safety Report 24144770 (Version 3)
Quarter: 2024Q3

REPORT INFORMATION
  Report Type: Report from Study
  Country: CA (occurrence: CA)
  Receive Date: 20240729
  Receipt Date: 20240915
  Transmission Date: 20241016
  Serious: Yes (Death, Hospitalization, Other)
  Sender: ABBVIE
  Company Number: CA-ABBVIE-5853543

PATIENT
  Age: 79 Year
  Sex: Female

DRUGS (3)
  1. RINVOQ [Suspect]
     Active Substance: UPADACITINIB
     Indication: Rheumatoid arthritis
     Dosage: FORM STRENGTH: 15 MILLIGRAM
     Route: 048
     Dates: start: 20211012, end: 20240712
  2. RINVOQ [Suspect]
     Active Substance: UPADACITINIB
     Indication: Rheumatoid arthritis
     Route: 048
  3. METHICILLIN [Suspect]
     Active Substance: METHICILLIN
     Indication: Product used for unknown indication
     Route: 065

REACTIONS (2)
  - Cellulitis staphylococcal [Fatal]
  - Sepsis [Fatal]

NARRATIVE: CASE EVENT DATE: 20240712
